FAERS Safety Report 4349255-2 (Version None)
Quarter: 2004Q2

REPORT INFORMATION
  Report Type: 
  Country: None (occurrence: None)
  Receive Date: 20040427
  Receipt Date: 20031020
  Transmission Date: 20050107
  Serious: Yes (Hospitalization)
  Sender: FDA-Public Use
  Company Number: 000679

PATIENT
  Age: 61 Year
  Sex: Female
  Weight: 55.1 kg

DRUGS (5)
  1. ZEVALIN [Suspect]
     Indication: NON-HODGKIN'S LYMPHOMA
     Dosage: 250 MG/M2, RITUXAN DOSE 1, INTRAVENOUS
     Route: 042
     Dates: start: 20030917, end: 20030917
  2. ZEVALIN [Suspect]
     Dosage: 5 MCI, IN-[111] ZEVALIN DOSE 1, INTRAVENOUS
     Route: 042
     Dates: start: 20030917, end: 20030917
  3. ZEVALIN [Suspect]
     Dosage: 250 MG/M2, RITUXAN DOSE 2, INTRAVENOUS
     Route: 042
     Dates: start: 20030924, end: 20030924
  4. ZEVALIN [Suspect]
     Dosage: 5 MCI, IN-[111] ZEVALIN DOSE 2, INTRAVENOUS
     Route: 042
     Dates: start: 20030924, end: 20030924
  5. ZEVALIN [Suspect]
     Dosage: 19.9 MCI, Y-[90] ZEVALIN, INTRAVENOUS
     Route: 042
     Dates: start: 20030924, end: 20030924

REACTIONS (1)
  - HYPOTENSION [None]
